FAERS Safety Report 7947076-2 (Version None)
Quarter: 2011Q4

REPORT INFORMATION
  Report Type: 
  Country: None (occurrence: None)
  Receive Date: 20111129
  Receipt Date: 20110916
  Transmission Date: 20120403
  Serious: No
  Sender: FDA-Public Use
  Company Number: US-ASTRAZENECA-2011SE55962

PATIENT
  Age: 89 Year
  Sex: Female

DRUGS (1)
  1. VIMOVO [Suspect]
     Dosage: 6 TABLETS A DAY
     Route: 048

REACTIONS (2)
  - GASTRITIS [None]
  - INCORRECT DOSE ADMINISTERED [None]
